FAERS Safety Report 20115292 (Version 1)
Quarter: 2021Q4

REPORT INFORMATION
  Report Type: Report from Study
  Country: US (occurrence: US)
  Receive Date: 20211125
  Receipt Date: 20211125
  Transmission Date: 20220303
  Serious: Yes (Hospitalization, Other)
  Sender: FDA-Public Use
  Company Number: US-ABBVIE-21K-163-4093344-00

PATIENT
  Sex: Female
  Weight: 63.560 kg

DRUGS (2)
  1. HUMIRA [Suspect]
     Active Substance: ADALIMUMAB
     Indication: Psoriasis
     Route: 058
  2. MODERNA COVID-19 VACCINE [Concomitant]
     Active Substance: CX-024414
     Indication: COVID-19 immunisation
     Route: 030

REACTIONS (26)
  - Loose tooth [Recovered/Resolved]
  - Tooth impacted [Recovered/Resolved]
  - Tooth extraction [Recovered/Resolved]
  - Complication associated with device [Recovered/Resolved]
  - Tooth extraction [Unknown]
  - Device issue [Recovered/Resolved]
  - Stomatitis [Recovered/Resolved]
  - Incorrect dose administered [Recovered/Resolved]
  - Denture wearer [Not Recovered/Not Resolved]
  - Tooth impacted [Recovered/Resolved]
  - Dental caries [Recovered/Resolved]
  - Gingival disorder [Recovered/Resolved]
  - Oral mucosal roughening [Recovered/Resolved]
  - Noninfective gingivitis [Recovered/Resolved]
  - Gingival discomfort [Recovered/Resolved]
  - Gingival discomfort [Not Recovered/Not Resolved]
  - Chronic obstructive pulmonary disease [Not Recovered/Not Resolved]
  - Tooth infection [Recovered/Resolved]
  - Psoriasis [Recovered/Resolved]
  - Gingival pain [Recovered/Resolved]
  - Tooth infection [Recovered/Resolved]
  - Post procedural infection [Not Recovered/Not Resolved]
  - Dental prosthesis placement [Not Recovered/Not Resolved]
  - Stress [Unknown]
  - Psoriasis [Recovering/Resolving]
  - Candida infection [Recovering/Resolving]

NARRATIVE: CASE EVENT DATE: 20210101
